FAERS Safety Report 5353139-0 (Version None)
Quarter: 2007Q2

REPORT INFORMATION
  Report Type: 
  Country: None (occurrence: None)
  Receive Date: 20070607
  Receipt Date: 20070525
  Transmission Date: 20071010
  Serious: Yes (Hospitalization)
  Sender: FDA-Public Use
  Company Number: 2007-02557

PATIENT
  Age: 85 Year
  Sex: Male

DRUGS (2)
  1. TRELSTAR DEPOT [Suspect]
     Indication: PROSTATE CANCER
     Dosage: 3.75 MG, QM, INTRAMUSCULAR
     Route: 030
     Dates: start: 20070304, end: 20070304
  2. ASPIRIN [Concomitant]

REACTIONS (3)
  - ATRIAL FLUTTER [None]
  - HYPERSENSITIVITY [None]
  - HYPERTENSION [None]
